FAERS Safety Report 23167401 (Version 2)
Quarter: 2024Q1

REPORT INFORMATION
  Report Type: Spontaneous
  Country: US (occurrence: US)
  Receive Date: 20231109
  Receipt Date: 20240117
  Transmission Date: 20240410
  Serious: Yes (Other)
  Sender: FDA-Public Use
  Company Number: US-002147023-NVSC2023US233875

PATIENT

DRUGS (11)
  1. JAKAFI [Interacting]
     Active Substance: RUXOLITINIB
     Indication: Graft versus host disease in gastrointestinal tract
     Dosage: 2.5 MG (AFTER EACH DIALYSIS SESSION)
     Route: 048
  2. JAKAFI [Interacting]
     Active Substance: RUXOLITINIB
     Indication: Graft versus host disease in liver
     Dosage: 5 MG, QD (ON DAY PLUS 66)
     Route: 048
  3. JAKAFI [Interacting]
     Active Substance: RUXOLITINIB
     Dosage: 2.5 MG, QD, DISCONTINUED WITHOUT TAPERING ON D 119
     Route: 048
  4. POSACONAZOLE [Interacting]
     Active Substance: POSACONAZOLE
     Indication: Product used for unknown indication
     Dosage: UNK
     Route: 065
  5. CIDOFOVIR [Suspect]
     Active Substance: CIDOFOVIR
     Indication: Adenovirus infection
     Dosage: UNK
     Route: 065
  6. METHYLPREDNISOLONE [Concomitant]
     Active Substance: METHYLPREDNISOLONE
     Indication: Product used for unknown indication
     Dosage: UNK, WAS WEANED BY 25 PERSENT ON DAY 84
     Route: 065
  7. BUDESONIDE [Concomitant]
     Active Substance: BUDESONIDE
     Indication: Graft versus host disease in gastrointestinal tract
     Dosage: 3 MG, TID (VIA A TRANSPYLORIC TUBE)
     Route: 065
  8. BUDESONIDE [Concomitant]
     Active Substance: BUDESONIDE
     Indication: Graft versus host disease in liver
  9. TACROLIMUS [Concomitant]
     Active Substance: TACROLIMUS
     Indication: Graft versus host disease in gastrointestinal tract
     Dosage: UNK (GOAL TROUGH OF 5-15 NG/ML)
     Route: 065
  10. TACROLIMUS [Concomitant]
     Active Substance: TACROLIMUS
     Indication: Graft versus host disease in liver
  11. HYDROCORTISONE [Concomitant]
     Active Substance: HYDROCORTISONE
     Indication: Adrenal insufficiency
     Dosage: 50 MG, Q6H (STRESS DOSING; (EQUIVALENT TO METHYLPREDNISOLONE 0.8 MG/KG/DAY)
     Route: 042

REACTIONS (1)
  - Myelosuppression [Recovered/Resolved]
